FAERS Safety Report 12424729 (Version 1)
Quarter: 2016Q2

REPORT INFORMATION
  Report Type: Spontaneous
  Country: US (occurrence: None)
  Receive Date: 20160531
  Receipt Date: 20160531
  Transmission Date: 20160815
  Serious: Yes (Hospitalization)
  Sender: FDA-Public Use
  Company Number: None

PATIENT
  Age: 41 Year
  Sex: Male
  Weight: 108 kg

DRUGS (1)
  1. RIVAROXABAN [Suspect]
     Active Substance: RIVAROXABAN
     Route: 048
     Dates: start: 20150209, end: 20150214

REACTIONS (3)
  - Acute kidney injury [None]
  - Haemorrhage [None]
  - Thrombocytopenia [None]

NARRATIVE: CASE EVENT DATE: 20150218
